FAERS Safety Report 7942339-9 (Version None)
Quarter: 2011Q4

REPORT INFORMATION
  Report Type: 
  Country: None (occurrence: None)
  Receive Date: 20111128
  Receipt Date: 20111122
  Transmission Date: 20120403
  Serious: Yes (Hospitalization)
  Sender: FDA-Public Use
  Company Number: US-GILEAD-2011-0046163

PATIENT
  Sex: Male

DRUGS (9)
  1. LETAIRIS [Suspect]
     Indication: HEPATIC CIRRHOSIS
  2. ASPIRIN [Concomitant]
  3. ZOCOR [Concomitant]
  4. ALDACTONE [Concomitant]
  5. BUSPAR [Concomitant]
  6. LETAIRIS [Suspect]
     Indication: PORTOPULMONARY HYPERTENSION
     Dosage: 10 MG, UNK
     Route: 048
     Dates: start: 20110106
  7. TRAZODONE HCL [Concomitant]
  8. PEPCID [Concomitant]
  9. TYVASO [Concomitant]

REACTIONS (1)
  - GASTROINTESTINAL HAEMORRHAGE [None]
